FAERS Safety Report 24080768 (Version 2)
Quarter: 2024Q3

REPORT INFORMATION
  Report Type: Report from Study
  Country: MX (occurrence: None)
  Receive Date: 20240711
  Receipt Date: 20240722
  Transmission Date: 20241017
  Serious: Yes (Other)
  Sender: ASTRAZENECA
  Company Number: 2023A097403

PATIENT
  Age: 1053 Month
  Sex: Female
  Weight: 64 kg

DRUGS (8)
  1. TAGRISSO [Suspect]
     Active Substance: OSIMERTINIB
     Indication: Lung neoplasm malignant
     Dosage: 0.5DF AS REQUIRED
     Route: 048
     Dates: start: 202306
  2. TAGRISSO [Suspect]
     Active Substance: OSIMERTINIB
     Indication: Lung neoplasm malignant
     Dosage: 80.0MG AS REQUIRED
     Route: 048
     Dates: start: 20240211
  3. ORNITHINE ASPARTATE [Concomitant]
     Active Substance: ORNITHINE ASPARTATE
     Indication: Hepatic cirrhosis
  4. PEARLS PROBIOTICS [Concomitant]
     Indication: Hepatic cirrhosis
  5. LIGERIS [Concomitant]
     Indication: Hepatic cirrhosis
  6. URSODIOL [Concomitant]
     Active Substance: URSODIOL
     Indication: Hepatic cirrhosis
     Dosage: ONE CAPSULE 3 TIMES A DAY
  7. ENTEREX HPT [Concomitant]
     Indication: Hepatic cirrhosis
  8. LIVER AMINO ACID POWDER [Concomitant]
     Indication: Hepatic cirrhosis

REACTIONS (25)
  - Diarrhoea [Recovering/Resolving]
  - Renal injury [Not Recovered/Not Resolved]
  - Carcinoembryonic antigen increased [Recovering/Resolving]
  - Positron emission tomogram abnormal [Not Recovered/Not Resolved]
  - Contusion [Not Recovered/Not Resolved]
  - Erythema [Unknown]
  - Peripheral swelling [Recovering/Resolving]
  - Gastrointestinal sounds abnormal [Recovering/Resolving]
  - Pruritus [Not Recovered/Not Resolved]
  - Platelet count decreased [Not Recovered/Not Resolved]
  - Decreased appetite [Recovering/Resolving]
  - Weight abnormal [Recovered/Resolved]
  - Weight increased [Recovered/Resolved]
  - Body height decreased [Recovered/Resolved]
  - Dry mouth [Not Recovered/Not Resolved]
  - Taste disorder [Not Recovered/Not Resolved]
  - Taste disorder [Unknown]
  - Hyperchlorhydria [Unknown]
  - Dyspepsia [Not Recovered/Not Resolved]
  - Fatigue [Unknown]
  - Constipation [Not Recovered/Not Resolved]
  - Blood triglycerides increased [Not Recovered/Not Resolved]
  - Burning sensation [Unknown]
  - Influenza [Recovered/Resolved]
  - Product use issue [Unknown]

NARRATIVE: CASE EVENT DATE: 20230201
